FAERS Safety Report 8947909 (Version 2)
Quarter: 2013Q3

REPORT INFORMATION
  Report Type: Spontaneous
  Country: US (occurrence: None)
  Receive Date: 20121127
  Receipt Date: 20130815
  Transmission Date: 20140515
  Serious: Yes (Hospitalization)
  Sender: FDA-Public Use
  Company Number: 2012AP004035

PATIENT
  Age: 40 Year
  Sex: Female

DRUGS (2)
  1. CITALOPRAM HYDROBROMIDE TABLETS, 40 MG (PUREPAC) [Suspect]
     Indication: DEPRESSION
  2. FLUOXETINE [Concomitant]

REACTIONS (7)
  - Syncope [None]
  - Torsade de pointes [None]
  - Palpitations [None]
  - Dizziness [None]
  - Electrocardiogram QT prolonged [None]
  - Fall [None]
  - Laceration [None]
